FAERS Safety Report 7747489-8 (Version None)
Quarter: 2011Q3

REPORT INFORMATION
  Report Type: 
  Country: None (occurrence: None)
  Receive Date: 20110909
  Receipt Date: 20110826
  Transmission Date: 20111222
  Serious: Yes (Hospitalization)
  Sender: FDA-Public Use
  Company Number: AUR-APL-2011-04533

PATIENT
  Age: 44 Year
  Sex: Male

DRUGS (3)
  1. ACETAMINOPHEN [Suspect]
     Indication: PRODUCT USED FOR UNKNOWN INDICATION
  2. OLANZAPINE [Suspect]
     Indication: PRODUCT USED FOR UNKNOWN INDICATION
  3. BISOPROLOL FUMARATE [Suspect]
     Indication: PRODUCT USED FOR UNKNOWN INDICATION

REACTIONS (15)
  - SEPSIS [None]
  - HYPOTENSION [None]
  - HYPOPHOSPHATAEMIA [None]
  - MULTIPLE DRUG OVERDOSE INTENTIONAL [None]
  - FALL [None]
  - CACHEXIA [None]
  - WEIGHT DECREASED [None]
  - BRADYCARDIA [None]
  - ASTHENIA [None]
  - COMA [None]
  - PNEUMONIA [None]
  - TRANSAMINASES INCREASED [None]
  - DEPRESSED MOOD [None]
  - HYPERTHERMIA [None]
  - HYPOKALAEMIA [None]
